FAERS Safety Report 6065378-4 (Version None)
Quarter: 2009Q1

REPORT INFORMATION
  Report Type: 
  Country: None (occurrence: None)
  Receive Date: 20090204
  Receipt Date: 20040127
  Transmission Date: 20090719
  Serious: Yes (Hospitalization)
  Sender: FDA-Public Use
  Company Number: US-PFIZER INC-2009152425

PATIENT
  Sex: Male
  Weight: 113.61 kg

DRUGS (2)
  1. CELECOXIB [Suspect]
     Indication: ANKYLOSING SPONDYLITIS
     Dosage: 200 MG, 1X/DAY
     Dates: start: 20020429, end: 20020430
  2. TIAZAC [Concomitant]
     Dosage: UNK
     Dates: start: 19980301

REACTIONS (1)
  - BLOOD PRESSURE DECREASED [None]
